FAERS Safety Report 9366997 (Version 1)
Quarter: 2013Q2

REPORT INFORMATION
  Report Type: Spontaneous
  Country: BR (occurrence: BR)
  Receive Date: 20130625
  Receipt Date: 20130625
  Transmission Date: 20140414
  Serious: Yes (Death, Hospitalization, Other)
  Sender: FDA-Public Use
  Company Number: BR-ABBOTT-13P-020-1108899-00

PATIENT
  Age: 65 Year
  Sex: Male

DRUGS (3)
  1. HUMIRA [Suspect]
     Indication: SPINAL OSTEOARTHRITIS
     Dates: start: 201212, end: 201305
  2. METHOTREXAAT [Concomitant]
     Indication: ARTHRITIS
  3. PREDNISONE [Concomitant]
     Indication: SPINAL OSTEOARTHRITIS

REACTIONS (3)
  - Death [Fatal]
  - Plasma cell myeloma [Fatal]
  - Intestinal haemorrhage [Unknown]
